FAERS Safety Report 21136896 (Version 3)
Quarter: 2022Q3

REPORT INFORMATION
  Report Type: Spontaneous
  Country: CN (occurrence: CN)
  Receive Date: 20220727
  Receipt Date: 20220815
  Transmission Date: 20221026
  Serious: Yes (Hospitalization, Other)
  Sender: FDA-Public Use
  Company Number: CN-PFIZER INC-PV202200024698

PATIENT
  Age: 69 Year
  Sex: Female

DRUGS (3)
  1. DACOMITINIB [Suspect]
     Active Substance: DACOMITINIB
     Indication: Lung neoplasm malignant
     Dosage: 45 MG, 1X/DAY
     Route: 048
     Dates: start: 20200929, end: 202011
  2. LORATADINE [Suspect]
     Active Substance: LORATADINE
     Indication: Rhinitis allergic
     Dosage: UNK
     Dates: start: 20201025, end: 202011
  3. METOPROLOL [Suspect]
     Active Substance: METOPROLOL
     Indication: Tachycardia
     Dosage: 47.5 MG
     Dates: start: 20201031, end: 202011

REACTIONS (3)
  - Drug-induced liver injury [Recovered/Resolved]
  - Hepatitis [Recovered/Resolved]
  - Jaundice [Recovered/Resolved]

NARRATIVE: CASE EVENT DATE: 20201101
